FAERS Safety Report 16710428 (Version 2)
Quarter: 2019Q4

REPORT INFORMATION
  Report Type: Report from Study
  Country: US (occurrence: US)
  Receive Date: 20190816
  Receipt Date: 20191011
  Transmission Date: 20200122
  Serious: Yes (Other)
  Sender: FDA-Public Use
  Company Number: US-TAIHO ONCOLOGY  INC-EU-2019-02710

PATIENT
  Age: 73 Year
  Sex: Male

DRUGS (1)
  1. LONSURF [Suspect]
     Active Substance: TIPIRACIL HYDROCHLORIDE\TRIFLURIDINE
     Indication: GASTRIC CANCER
     Dosage: CURRENT CYCLE UNKNOWN.?LONSURF DISCONTINUED ON AN UNSPECIFIED DATE.
     Route: 048
     Dates: start: 20190718, end: 2019

REACTIONS (2)
  - Weight decreased [Unknown]
  - Transfusion [Unknown]

NARRATIVE: CASE EVENT DATE: 2019
